FAERS Safety Report 4458254-1 (Version None)
Quarter: 2004Q3

REPORT INFORMATION
  Report Type: 
  Country: None (occurrence: None)
  Receive Date: 20040924
  Receipt Date: 20040913
  Transmission Date: 20050211
  Serious: Yes (Other)
  Sender: FDA-Public Use
  Company Number: FR-JNJFOC-20040903788

PATIENT
  Age: 15 Year
  Sex: Male

DRUGS (1)
  1. ACETAMINOPHEN AND TRAMADOL HCL [Suspect]
     Dosage: 2 TABLETS/DAILY.
     Route: 049

REACTIONS (4)
  - AGGRESSION [None]
  - AGITATION [None]
  - INCOHERENT [None]
  - PARANOIA [None]
